FAERS Safety Report 14484468 (Version 1)
Quarter: 2018Q1

REPORT INFORMATION
  Report Type: Report from Study
  Country: NL (occurrence: NL)
  Receive Date: 20180205
  Receipt Date: 20180205
  Transmission Date: 20180509
  Serious: Yes (Other)
  Sender: FDA-Public Use
  Company Number: NL- NODEN DAC PHARMA-NOD-2018-000010

PATIENT
  Age: 59 Year
  Sex: Female

DRUGS (1)
  1. ALISKIREN [Suspect]
     Active Substance: ALISKIREN
     Indication: ESSENTIAL HYPERTENSION
     Dosage: CODE NOT BROKEN
     Route: 048

REACTIONS (1)
  - Hypokalaemia [Unknown]
